FAERS Safety Report 11374379 (Version 3)
Quarter: 2015Q4

REPORT INFORMATION
  Report Type: Spontaneous
  Country: US (occurrence: US)
  Receive Date: 20150813
  Receipt Date: 20151225
  Transmission Date: 20160304
  Serious: Yes (Other)
  Sender: FDA-Public Use
  Company Number: US-AMGEN-USASP2015081520

PATIENT
  Age: 81 Year
  Sex: Male

DRUGS (2)
  1. ENBREL [Suspect]
     Active Substance: ETANERCEPT
     Indication: OSTEOARTHRITIS
     Dosage: UNK
     Route: 065
     Dates: start: 2015
  2. ENBREL [Suspect]
     Active Substance: ETANERCEPT
     Indication: RHEUMATOID ARTHRITIS
     Dosage: 50 MG, QWK
     Route: 065
     Dates: start: 2014, end: 2015

REACTIONS (9)
  - Anaemia [Unknown]
  - Drug effect decreased [Unknown]
  - Arthralgia [Not Recovered/Not Resolved]
  - Laboratory test abnormal [Unknown]
  - Hip arthroplasty [Unknown]
  - Drug effect delayed [Unknown]
  - White blood cell count increased [Unknown]
  - Vitamin D decreased [Unknown]
  - Injection site pain [Unknown]

NARRATIVE: CASE EVENT DATE: 2015
